FAERS Safety Report 16033333 (Version 1)
Quarter: 2019Q1

REPORT INFORMATION
  Report Type: Spontaneous
  Country: JP (occurrence: JP)
  Receive Date: 20190305
  Receipt Date: 20190305
  Transmission Date: 20190418
  Serious: Yes (Other)
  Sender: FDA-Public Use
  Company Number: JP-SA-2018SA070469

PATIENT
  Age: 49 Year

DRUGS (4)
  1. FLUOROURACIL. [Concomitant]
     Active Substance: FLUOROURACIL
     Indication: COLON CANCER
     Dosage: 4 CYCLES WERE PERFORMED
     Route: 042
     Dates: start: 20171215, end: 20180126
  2. CALCIUM LEVOFOLINATE [Concomitant]
     Active Substance: LEVOLEUCOVORIN CALCIUM
     Indication: COLON CANCER
     Dosage: 4 CYCLES WERE PERFORMED
     Route: 042
     Dates: start: 20171215, end: 20180126
  3. CAMPTO [Concomitant]
     Active Substance: IRINOTECAN
     Indication: COLON CANCER
     Dosage: 4 CYCLES WERE PERFORMED
     Route: 042
     Dates: start: 20171215, end: 20180126
  4. ZALTRAP [Suspect]
     Active Substance: ZIV-AFLIBERCEPT
     Indication: COLON CANCER
     Dosage: 4 CYCLES WERE PERFORMED
     Route: 041
     Dates: start: 20171215, end: 20180126

REACTIONS (1)
  - Cholangitis [Recovering/Resolving]

NARRATIVE: CASE EVENT DATE: 20180209
